FAERS Safety Report 20779234 (Version 4)
Quarter: 2022Q4

REPORT INFORMATION
  Report Type: Spontaneous
  Country: US (occurrence: US)
  Receive Date: 20220503
  Receipt Date: 20221227
  Transmission Date: 20230112
  Serious: No
  Sender: FDA-Public Use
  Company Number: US-PFIZER INC-202101468106

PATIENT
  Age: 57 Year
  Sex: Male

DRUGS (1)
  1. XELJANZ XR [Suspect]
     Active Substance: TOFACITINIB CITRATE
     Indication: Rheumatoid arthritis
     Dosage: 11 MG, DAILY
     Route: 048
     Dates: start: 20211011

REACTIONS (9)
  - Product dose omission issue [Unknown]
  - Therapy interrupted [Unknown]
  - Arthralgia [Recovering/Resolving]
  - COVID-19 [Unknown]
  - Pain [Unknown]
  - Erythema [Recovered/Resolved]
  - Joint swelling [Recovered/Resolved]
  - Productive cough [Not Recovered/Not Resolved]
  - Intentional product misuse [Unknown]
